FAERS Safety Report 7119014-6 (Version None)
Quarter: 2010Q4

REPORT INFORMATION
  Report Type: 
  Country: None (occurrence: None)
  Receive Date: 20101123
  Receipt Date: 20101118
  Transmission Date: 20110411
  Serious: Yes (Hospitalization)
  Sender: FDA-Public Use
  Company Number: A0891235A

PATIENT
  Sex: Male

DRUGS (1)
  1. WELLBUTRIN XL [Suspect]
     Indication: DEPRESSION
     Dosage: 150MG PER DAY
     Dates: start: 20101019

REACTIONS (5)
  - MIGRAINE [None]
  - OVERDOSE [None]
  - PYREXIA [None]
  - TACHYCARDIA [None]
  - VOMITING [None]
